FAERS Safety Report 6054516-5 (Version None)
Quarter: 2009Q1

REPORT INFORMATION
  Report Type: 
  Country: None (occurrence: None)
  Receive Date: 20090127
  Receipt Date: 20090119
  Transmission Date: 20090719
  Serious: Yes (Hospitalization, Other)
  Sender: FDA-Public Use
  Company Number: PHBS2009IN00548

PATIENT
  Age: 22 Year
  Sex: Female

DRUGS (11)
  1. OXYTOCIN [Suspect]
     Indication: INDUCED LABOUR
     Dosage: 6 MILLI IU/MIN GRADUALLY INCREASED TO 40 MILLI IU/MIN
  2. FENTANYL CITRATE [Concomitant]
     Dosage: 25 UG
     Route: 037
  3. FENTANYL CITRATE [Concomitant]
     Dosage: 0.0002% @ 5 ML/HOUR
  4. BUPIVACAINE [Concomitant]
  5. THIOPENTAL SODIUM [Concomitant]
  6. SUCCINYLCHOLINE CHLORIDE [Concomitant]
  7. OXYGEN [Concomitant]
  8. NITROUS OXIDE [Concomitant]
  9. VECURONIUM BROMIDE [Concomitant]
  10. CARBOPROST TROMETHAMINE [Concomitant]
  11. LACTATED RINGER'S [Concomitant]

REACTIONS (13)
  - ARRESTED LABOUR [None]
  - CAESAREAN SECTION [None]
  - CATHETER RELATED COMPLICATION [None]
  - DRUG EXPOSURE DURING PREGNANCY [None]
  - ENDOTRACHEAL INTUBATION [None]
  - EPIDURAL ANAESTHESIA [None]
  - HEART VALVE STENOSIS [None]
  - INCREASED BRONCHIAL SECRETION [None]
  - MECHANICAL VENTILATION [None]
  - OXYGEN SATURATION DECREASED [None]
  - PULMONARY OEDEMA [None]
  - RALES [None]
  - UTERINE ATONY [None]
